FAERS Safety Report 5954093-0 (Version None)
Quarter: 2008Q4

REPORT INFORMATION
  Report Type: 
  Country: None (occurrence: None)
  Receive Date: 20081114
  Receipt Date: 20081104
  Transmission Date: 20090506
  Serious: Yes (Death, Hospitalization)
  Sender: FDA-Public Use
  Company Number: US-MERCK-0807USA01648

PATIENT
  Age: 84 Year
  Sex: Female

DRUGS (3)
  1. FOSAMAX [Suspect]
     Indication: OSTEOPOROSIS
     Route: 048
     Dates: start: 20051230
  2. ENALAPRIL MALEATE [Concomitant]
     Indication: HYPERTENSION
     Route: 065
     Dates: start: 19990101
  3. [THERAPY UNSPECIFIED] [Concomitant]
     Indication: DIABETES MELLITUS
     Route: 065
     Dates: start: 19990101

REACTIONS (6)
  - CARDIAC FAILURE CONGESTIVE [None]
  - CELLULITIS [None]
  - CONSTIPATION [None]
  - EAR PAIN [None]
  - HYPOAESTHESIA ORAL [None]
  - PAIN IN JAW [None]
